FAERS Safety Report 16141625 (Version 1)
Quarter: 2019Q2

REPORT INFORMATION
  Report Type: Spontaneous
  Country: BR (occurrence: BR)
  Receive Date: 20190331
  Receipt Date: 20190331
  Transmission Date: 20190711
  Serious: Yes (Life-Threatening, Hospitalization, Disabling, Other)
  Sender: FDA-Public Use
  Company Number: None

PATIENT
  Age: 18 Year
  Sex: Female
  Weight: 57 kg

DRUGS (1)
  1. LAMITOR - LAMOTRIGINA [Suspect]
     Active Substance: LAMOTRIGINE
     Indication: EPILEPSY
     Dosage: ?          QUANTITY:1 CAPSULE(S);?
     Route: 048

REACTIONS (5)
  - Eye movement disorder [None]
  - Visual impairment [None]
  - Eye disorder [None]
  - Reading disorder [None]
  - Dry eye [None]

NARRATIVE: CASE EVENT DATE: 20110619
